FAERS Safety Report 18063858 (Version 3)
Quarter: 2020Q3

REPORT INFORMATION
  Report Type: Report from Study
  Country: None (occurrence: CA)
  Receive Date: 20200724
  Receipt Date: 20200820
  Transmission Date: 20201103
  Serious: Yes (Hospitalization, Other)
  Sender: FDA-Public Use
  Company Number: CA-ABBVIE-20K-028-3495925-00

PATIENT
  Age: 64 Year
  Sex: Male
  Weight: 66 kg

DRUGS (6)
  1. ZOPICLONE [Concomitant]
     Active Substance: ZOPICLONE
     Indication: PRODUCT USED FOR UNKNOWN INDICATION
  2. LUPRON DEPOT [Suspect]
     Active Substance: LEUPROLIDE ACETATE
     Indication: PROSTATE CANCER
     Route: 030
     Dates: end: 20200408
  3. PLAVIX [Concomitant]
     Active Substance: CLOPIDOGREL BISULFATE
     Indication: CEREBROVASCULAR ACCIDENT
  4. PLAVIX [Concomitant]
     Active Substance: CLOPIDOGREL BISULFATE
     Indication: TRANSIENT ISCHAEMIC ATTACK
     Route: 048
     Dates: start: 20200716
  5. ACETYLSALICYLIC ACID [Concomitant]
     Active Substance: ASPIRIN
     Indication: PRODUCT USED FOR UNKNOWN INDICATION
     Route: 048
     Dates: start: 20200716
  6. HYDROMORPHONE [Concomitant]
     Active Substance: HYDROMORPHONE
     Indication: PRODUCT USED FOR UNKNOWN INDICATION

REACTIONS (17)
  - Cerebrovascular accident [Recovered/Resolved with Sequelae]
  - Cerebral small vessel ischaemic disease [Unknown]
  - Transient ischaemic attack [Recovered/Resolved with Sequelae]
  - Hypoaesthesia [Recovering/Resolving]
  - Cerebellar atrophy [Unknown]
  - Chronic obstructive pulmonary disease [Unknown]
  - Mucosal hypertrophy [Unknown]
  - Paranasal cyst [Unknown]
  - Mastoid effusion [Unknown]
  - Facial paralysis [Recovered/Resolved]
  - Muscular weakness [Recovering/Resolving]
  - Cerebral atrophy [Unknown]
  - Emphysema [Unknown]
  - Arteriosclerosis [Unknown]
  - Spinal osteoarthritis [Unknown]
  - Hemiparesis [Unknown]
  - Lacunar stroke [Unknown]

NARRATIVE: CASE EVENT DATE: 20200715
